FAERS Safety Report 8588591-0 (Version None)
Quarter: 2012Q3

REPORT INFORMATION
  Report Type: 
  Country: None (occurrence: None)
  Receive Date: 20120813
  Receipt Date: 20120803
  Transmission Date: 20120928
  Serious: Yes (Other)
  Sender: FDA-Public Use
  Company Number: FR-JNJFOC-20120802865

PATIENT
  Age: 32 Year
  Sex: Male

DRUGS (1)
  1. CONCERTA [Suspect]
     Indication: DISTURBANCE IN ATTENTION
     Route: 048

REACTIONS (3)
  - BURNS SECOND DEGREE [None]
  - OFF LABEL USE [None]
  - PHOTOSENSITIVITY REACTION [None]
